FAERS Safety Report 20994010 (Version 2)
Quarter: 2022Q3

REPORT INFORMATION
  Report Type: Spontaneous
  Country: HU (occurrence: HU)
  Receive Date: 20220622
  Receipt Date: 20220718
  Transmission Date: 20221027
  Serious: Yes (Other)
  Sender: FDA-Public Use
  Company Number: HU-PFIZER INC-202200576374

PATIENT
  Age: 13 Year
  Sex: Male
  Weight: 35 kg

DRUGS (1)
  1. REFACTO AF [Suspect]
     Active Substance: ANTIHEMOPHILIC FACTOR, HUMAN RECOMBINANT RESIDUES 743-1636 DELETED
     Indication: Factor VIII deficiency
     Dosage: ON DEMAND 8X500U + 45X1000U + 1X1500U + 3X2000U
     Dates: start: 201603

REACTIONS (6)
  - Anti factor VIII antibody positive [Unknown]
  - Traumatic haemorrhage [Unknown]
  - Traumatic haemorrhage [Unknown]
  - Wrist fracture [Unknown]
  - Haematoma [Unknown]
  - Joint injury [Unknown]

NARRATIVE: CASE EVENT DATE: 20210101
